FAERS Safety Report 8252846 (Version 2)
Quarter: 2016Q1

REPORT INFORMATION
  Report Type: Report from Study
  Country: US (occurrence: US)
  Receive Date: 20111118
  Receipt Date: 20160128
  Transmission Date: 20160526
  Serious: Yes (Death, Hospitalization)
  Sender: FDA-Public Use
  Company Number: US-ROCHE-1011139

PATIENT
  Age: 67 Year

DRUGS (4)
  1. TRASTUZUMAB [Suspect]
     Active Substance: TRASTUZUMAB
     Indication: TRANSITIONAL CELL CARCINOMA
     Dosage: OVER 30-90 MINUTES ON DAYS 1,8,15. DOSE 1 OF FIRST CYCLE IS 4MG/KG.
     Route: 042
     Dates: start: 20010619
  2. CARBOPLATIN. [Suspect]
     Active Substance: CARBOPLATIN
     Indication: TRANSITIONAL CELL CARCINOMA
     Dosage: 5 AUC  OVER 15 MINUTES ON DAY 1
     Route: 042
     Dates: start: 20010619
  3. GEMCITABINE [Suspect]
     Active Substance: GEMCITABINE\GEMCITABINE HYDROCHLORIDE
     Indication: TRANSITIONAL CELL CARCINOMA
     Dosage: OVER 30 MINUTES ON DAY 1 AND 8
     Route: 042
     Dates: start: 20010619
  4. PACLITAXEL. [Suspect]
     Active Substance: PACLITAXEL
     Indication: TRANSITIONAL CELL CARCINOMA
     Dosage: OVER 3 HOURS ON DAY 1
     Route: 042
     Dates: start: 20010619

REACTIONS (4)
  - Hypotension [Fatal]
  - Acute kidney injury [Fatal]
  - Dehydration [Fatal]
  - Intestinal ischaemia [Fatal]

NARRATIVE: CASE EVENT DATE: 20010621
